FAERS Safety Report 16305067 (Version 1)
Quarter: 2019Q2

REPORT INFORMATION
  Report Type: Spontaneous
  Country: FR (occurrence: FR)
  Receive Date: 20190513
  Receipt Date: 20190513
  Transmission Date: 20190711
  Serious: Yes (Life-Threatening)
  Sender: FDA-Public Use
  Company Number: FR-MERZ NORTH AMERICA, INC.-19MRZ-00206

PATIENT
  Age: 37 Year
  Sex: Male

DRUGS (3)
  1. NARAMIG [Concomitant]
     Active Substance: NARATRIPTAN HYDROCHLORIDE
     Indication: HEADACHE
  2. ASCLERA [Suspect]
     Active Substance: POLIDOCANOL
     Indication: VARICOSE VEIN
     Dosage: UNKNOWN
     Route: 042
     Dates: start: 20181112, end: 20181112
  3. EPITMAX [Concomitant]
     Indication: HEADACHE

REACTIONS (1)
  - Anaphylactic shock [Recovered/Resolved]
